FAERS Safety Report 6536007-8 (Version None)
Quarter: 2010Q1

REPORT INFORMATION
  Report Type: 
  Country: None (occurrence: None)
  Receive Date: 20100113
  Receipt Date: 20100104
  Transmission Date: 20100710
  Serious: Yes (Other)
  Sender: FDA-Public Use
  Company Number: TW-ROCHE-677937

PATIENT
  Age: 80 Year
  Sex: Male

DRUGS (2)
  1. AVASTIN [Suspect]
     Indication: POLYPOIDAL CHOROIDAL VASCULOPATHY
     Dosage: DOSE REPORTED AS 2.5 MG IN 0.1 ML
     Route: 031
  2. AVASTIN [Suspect]
     Route: 031

REACTIONS (1)
  - RETINAL PIGMENT EPITHELIAL TEAR [None]
